FAERS Safety Report 6536003-0 (Version None)
Quarter: 2009Q4

REPORT INFORMATION
  Report Type: 
  Country: None (occurrence: None)
  Receive Date: 20091229
  Receipt Date: 20090331
  Transmission Date: 20100525
  Serious: Yes (Other)
  Sender: FDA-Public Use
  Company Number: WAES 0904USA00109

PATIENT
  Age: 67 Year
  Sex: Male
  Weight: 79.3795 kg

DRUGS (3)
  1. ZETIA [Suspect]
     Dosage: 10 MG/DAILY/PO
     Route: 048
     Dates: start: 20071201, end: 20090126
  2. NIASPAN [Suspect]
     Dosage: 1500 MG/DAILY
     Dates: start: 20071201, end: 20090126
  3. ASPIRIN [Concomitant]

REACTIONS (2)
  - RHABDOMYOLYSIS [None]
  - URINE COLOUR ABNORMAL [None]
